FAERS Safety Report 12285592 (Version 1)
Quarter: 2016Q2

REPORT INFORMATION
  Report Type: Spontaneous
  Country: US (occurrence: None)
  Receive Date: 20160419
  Receipt Date: 20160419
  Transmission Date: 20160815
  Serious: No
  Sender: FDA-Public Use
  Company Number: None

PATIENT
  Age: 64 Year
  Sex: Female
  Weight: 50.8 kg

DRUGS (8)
  1. TRAMADOL. [Concomitant]
     Active Substance: TRAMADOL
  2. DIOVAN [Concomitant]
     Active Substance: VALSARTAN
  3. INOGEN OXYGEN PORTABLE AND HOME MACHINE [Concomitant]
  4. SYMBICORT [Concomitant]
     Active Substance: BUDESONIDE\FORMOTEROL FUMARATE DIHYDRATE
  5. OXYGEN. [Suspect]
     Active Substance: OXYGEN
  6. COMBIVENT [Concomitant]
     Active Substance: ALBUTEROL SULFATE\IPRATROPIUM BROMIDE
  7. DILTIAZEM [Concomitant]
     Active Substance: DILTIAZEM
  8. XANAX [Concomitant]
     Active Substance: ALPRAZOLAM

REACTIONS (3)
  - Respiratory tract infection [None]
  - Device allergy [None]
  - Device related infection [None]

NARRATIVE: CASE EVENT DATE: 20091115
